FAERS Safety Report 10190343 (Version 1)
Quarter: 2014Q2

REPORT INFORMATION
  Report Type: Spontaneous
  Country: US (occurrence: US)
  Receive Date: 20140522
  Receipt Date: 20140522
  Transmission Date: 20141212
  Serious: Yes (Other)
  Sender: FDA-Public Use
  Company Number: US-BAXTER-2013BAX026503

PATIENT
  Age: 74 Year
  Sex: Female

DRUGS (4)
  1. GAMMAGARD LIQUID [Suspect]
     Indication: HYPOGAMMAGLOBULINAEMIA
     Route: 042
     Dates: start: 20130111
  2. GAMMAGARD LIQUID [Suspect]
     Route: 042
     Dates: start: 20130404
  3. GAMMAGARD LIQUID [Suspect]
     Route: 042
     Dates: start: 20130524
  4. GAMMAGARD LIQUID [Suspect]
     Route: 042
     Dates: start: 20130701

REACTIONS (3)
  - Chest discomfort [Unknown]
  - Abdominal discomfort [Unknown]
  - Musculoskeletal discomfort [Unknown]
